FAERS Safety Report 24233222 (Version 1)
Quarter: 2024Q3

REPORT INFORMATION
  Report Type: Spontaneous
  Country: PT (occurrence: PT)
  Receive Date: 20240821
  Receipt Date: 20240821
  Transmission Date: 20241016
  Serious: Yes (Death, Hospitalization, Other)
  Sender: GLAND PHARMA
  Company Number: PT-GLANDPHARMA-PT-2024GLNLIT00643

PATIENT
  Age: 87 Year
  Sex: Female

DRUGS (4)
  1. MEROPENEM [Suspect]
     Active Substance: MEROPENEM
     Indication: Burkholderia cepacia complex infection
     Route: 065
  2. CEFTAZIDIME [Suspect]
     Active Substance: CEFTAZIDIME
     Indication: Burkholderia cepacia complex infection
     Route: 065
  3. PIPERACILLIN AND TAZOBACTAM [Concomitant]
     Active Substance: PIPERACILLIN SODIUM\TAZOBACTAM SODIUM
     Indication: Pneumoperitoneum
     Route: 065
  4. SULFAMETHOXAZOLE\TRIMETHOPRIM [Concomitant]
     Active Substance: SULFAMETHOXAZOLE\TRIMETHOPRIM
     Indication: Burkholderia cepacia complex infection
     Route: 065

REACTIONS (2)
  - Drug resistance [Fatal]
  - Product use in unapproved indication [Unknown]
